FAERS Safety Report 8157336 (Version 5)
Quarter: 2013Q2

REPORT INFORMATION
  Report Type: Spontaneous
  Country: DK (occurrence: DK)
  Receive Date: 20110927
  Receipt Date: 20130520
  Transmission Date: 20140414
  Serious: Yes (Disabling, Other)
  Sender: FDA-Public Use
  Company Number: DK-PFIZER INC-2011226373

PATIENT
  Age: 36 Year
  Sex: Male
  Weight: 80 kg

DRUGS (12)
  1. LYRICA [Suspect]
     Indication: ANXIETY
     Dosage: 150 MG, DAILY
     Route: 048
     Dates: start: 20091210, end: 20110826
  2. SEROQUEL [Suspect]
     Indication: ANXIETY
     Dosage: 800 MG, 1X/DAY
     Route: 048
     Dates: start: 20090130, end: 20110525
  3. SEROQUEL [Suspect]
     Indication: DEPRESSED MOOD
  4. DELEPSINE - SLOW RELEASE [Suspect]
     Indication: BIPOLAR DISORDER
     Dosage: 2000 MG, DAILY
     Route: 048
     Dates: start: 20090320, end: 20110427
  5. PANTOPRAZOLE [Concomitant]
     Dosage: UNK
  6. RAMIPRIL [Concomitant]
     Dosage: UNK
  7. CIPRALEX [Concomitant]
     Dosage: UNK
  8. LITAREX [Concomitant]
     Dosage: UNK
  9. NICORETTE [Concomitant]
     Dosage: UNK
  10. CETIRIZINE [Concomitant]
     Dosage: UNK
  11. ALMINOX [Concomitant]
     Dosage: UNK
  12. ATENOLOL [Concomitant]
     Dosage: UNK

REACTIONS (3)
  - Overdose [Unknown]
  - Atonic urinary bladder [Not Recovered/Not Resolved]
  - Urinary retention [Unknown]
